FAERS Safety Report 13083055 (Version 1)
Quarter: 2017Q1

REPORT INFORMATION
  Report Type: Spontaneous
  Country: None (occurrence: US)
  Receive Date: 20170104
  Receipt Date: 20170104
  Transmission Date: 20170428
  Serious: No
  Sender: FDA-Public Use
  Company Number: US-LUPIN PHARMACEUTICALS INC.-2016-04519

PATIENT
  Sex: Female
  Weight: 79.45 kg

DRUGS (16)
  1. BACTRIM [Concomitant]
     Active Substance: SULFAMETHOXAZOLE\TRIMETHOPRIM
     Indication: CELLULITIS
     Route: 065
  2. DULOXETINE. [Suspect]
     Active Substance: DULOXETINE
     Route: 065
  3. KEFLEX [Concomitant]
     Active Substance: CEPHALEXIN
     Indication: CELLULITIS
     Route: 065
  4. KEFLEX [Concomitant]
     Active Substance: CEPHALEXIN
     Indication: BURSITIS
  5. CELEBREX [Concomitant]
     Active Substance: CELECOXIB
     Indication: PRODUCT USED FOR UNKNOWN INDICATION
     Dosage: 200-300 MG
     Route: 065
  6. BACTRIM [Concomitant]
     Active Substance: SULFAMETHOXAZOLE\TRIMETHOPRIM
     Indication: BURSITIS
  7. VANCOMYCIN [Concomitant]
     Active Substance: VANCOMYCIN
     Indication: STAPHYLOCOCCAL INFECTION
  8. ZOSYN [Concomitant]
     Active Substance: PIPERACILLIN SODIUM\TAZOBACTAM SODIUM
     Indication: OSTEOMYELITIS
     Route: 042
  9. ZOSYN [Concomitant]
     Active Substance: PIPERACILLIN SODIUM\TAZOBACTAM SODIUM
     Indication: STAPHYLOCOCCAL INFECTION
  10. ATORVASTATIN [Concomitant]
     Active Substance: ATORVASTATIN
     Indication: PRODUCT USED FOR UNKNOWN INDICATION
     Route: 065
  11. DULOXETINE. [Suspect]
     Active Substance: DULOXETINE
     Indication: BURNING SENSATION
     Route: 065
  12. POTASSIUM CHLORIDE. [Concomitant]
     Active Substance: POTASSIUM CHLORIDE
     Indication: PRODUCT USED FOR UNKNOWN INDICATION
     Route: 065
  13. CLINDAMYCIN. [Concomitant]
     Active Substance: CLINDAMYCIN
     Indication: STAPHYLOCOCCAL INFECTION
     Route: 065
  14. AMLODIPINE [Concomitant]
     Active Substance: AMLODIPINE BESYLATE
     Indication: PRODUCT USED FOR UNKNOWN INDICATION
     Route: 065
  15. LIPITOR [Concomitant]
     Active Substance: ATORVASTATIN CALCIUM
     Indication: PRODUCT USED FOR UNKNOWN INDICATION
     Route: 065
  16. VANCOMYCIN [Concomitant]
     Active Substance: VANCOMYCIN
     Indication: OSTEOMYELITIS
     Route: 042

REACTIONS (1)
  - Hyperhidrosis [Unknown]
